FAERS Safety Report 4474553-1 (Version None)
Quarter: 2004Q4

REPORT INFORMATION
  Report Type: 
  Country: None (occurrence: None)
  Receive Date: 20041012
  Receipt Date: 20040924
  Transmission Date: 20050328
  Serious: Yes (Other)
  Sender: FDA-Public Use
  Company Number: B0347172A

PATIENT
  Age: 11 Year
  Sex: Male

DRUGS (1)
  1. NICODERM CQ [Suspect]
     Dosage: TRANSDERMAL
     Route: 062

REACTIONS (14)
  - ABDOMINAL PAIN UPPER [None]
  - ACCIDENTAL EXPOSURE [None]
  - ANXIETY [None]
  - ASTHENIA [None]
  - COLD SWEAT [None]
  - DYSSTASIA [None]
  - FALL [None]
  - FEELING ABNORMAL [None]
  - HEADACHE [None]
  - NAUSEA [None]
  - PALPITATIONS [None]
  - THERAPEUTIC AGENT TOXICITY [None]
  - THERAPY NON-RESPONDER [None]
  - VOMITING [None]
